FAERS Safety Report 6802789-0 (Version None)
Quarter: 2010Q2

REPORT INFORMATION
  Report Type: 
  Country: None (occurrence: None)
  Receive Date: 20100628
  Receipt Date: 20100614
  Transmission Date: 20101027
  Serious: Yes (Hospitalization)
  Sender: FDA-Public Use
  Company Number: PHFR2010GB00797

PATIENT
  Sex: Female
  Weight: 73.1 kg

DRUGS (10)
  1. CLOZARIL [Suspect]
     Indication: SCHIZOPHRENIA
     Dosage: 150 MG MANE, 300 MG NOCTE
     Route: 048
     Dates: start: 20030612
  2. OMEPRAZOLE [Concomitant]
     Indication: GASTROOESOPHAGEAL REFLUX DISEASE
     Dosage: 40 MG, QD
     Route: 048
  3. ASCORBIC ACID [Concomitant]
     Dosage: 50 MG, QD
     Route: 048
  4. NULYTELY [Concomitant]
     Indication: CONSTIPATION
     Dosage: 1 DF QD
     Route: 048
  5. TRANEXAMIC ACID [Concomitant]
     Indication: MENORRHAGIA
     Dosage: 500 MG, QD
     Route: 048
  6. BENDROFLUMETHIAZIDE [Concomitant]
     Dosage: 2.5 MG, QD
     Route: 048
  7. BISOPROLOL FUMARATE [Concomitant]
     Dosage: 1.25 MG, QD
     Route: 048
  8. QVAR 40 [Concomitant]
  9. SALBUTAMOL [Concomitant]
  10. DEPO-PROVERA [Concomitant]
     Dosage: EVERY 3 MONTHS

REACTIONS (6)
  - DIARRHOEA [None]
  - GASTROINTESTINAL VIRAL INFECTION [None]
  - MALAISE [None]
  - TREATMENT NONCOMPLIANCE [None]
  - URINARY TRACT INFECTION [None]
  - VOMITING [None]
